FAERS Safety Report 22176008 (Version 1)
Quarter: 2023Q2

REPORT INFORMATION
  Report Type: Spontaneous
  Country: US (occurrence: None)
  Receive Date: 20230404
  Receipt Date: 20230404
  Transmission Date: 20230721
  Serious: Yes (Hospitalization)
  Sender: FDA-Public Use
  Company Number: None

PATIENT
  Age: 17 Year
  Sex: Female
  Weight: 41.5 kg

DRUGS (22)
  1. ASPARLAS [Suspect]
     Active Substance: CALASPARGASE PEGOL-MKNL
     Indication: Acute lymphocytic leukaemia
     Dosage: OTHER FREQUENCY : ONCE;?
     Route: 042
  2. VINCRISTINE [Concomitant]
     Active Substance: VINCRISTINE
     Dates: start: 20230224, end: 20230303
  3. PREDNISONE [Concomitant]
     Active Substance: PREDNISONE
     Dates: start: 20230224, end: 20230323
  4. DAUNORUBICIN [Concomitant]
     Active Substance: DAUNORUBICIN
     Dates: start: 20230224, end: 20230317
  5. DEXRAZOXANE [Concomitant]
     Active Substance: DEXRAZOXANE
     Dates: start: 20230224, end: 20230317
  6. METHOTREXATE [Concomitant]
     Active Substance: METHOTREXATE
     Dates: start: 20230303
  7. Intrathecal cytarabine [Concomitant]
     Dates: start: 20230224, end: 20230224
  8. IMATINIB [Concomitant]
     Active Substance: IMATINIB
     Dates: start: 20230310
  9. CYCLOPHOSPHAMIDE [Concomitant]
     Active Substance: CYCLOPHOSPHAMIDE
     Dates: start: 20230328
  10. MERCAPTOPURINE [Concomitant]
     Active Substance: MERCAPTOPURINE
     Dates: start: 20230328
  11. IV push/SQ cyatarabine [Concomitant]
     Dates: start: 20230328
  12. GABAPENTIN [Concomitant]
     Active Substance: GABAPENTIN
     Dates: start: 20230324
  13. Hydroxyzine prn [Concomitant]
  14. Ondansetron prn [Concomitant]
     Dates: start: 20230227
  15. POLYETHYLENE GLYCOL [Concomitant]
     Active Substance: POLYETHYLENE GLYCOL
     Dates: start: 20230227
  16. Sennosides-docusate [Concomitant]
     Dates: start: 20230328
  17. Sulfamethoxazole- trimethoprim [Concomitant]
     Dates: start: 20230227
  18. PANTOPRAZOLE [Concomitant]
     Active Substance: PANTOPRAZOLE
     Dates: start: 20230324
  19. FAMOTIDINE [Concomitant]
     Active Substance: FAMOTIDINE
     Dates: start: 20230227, end: 20230324
  20. HYCET [Concomitant]
     Active Substance: ACETAMINOPHEN\HYDROCODONE BITARTRATE
     Dates: start: 20230322
  21. DIPHENHYDRAMINE HYDROCHLORIDE\LIDOCAINE HYDROCHLORIDE\NYSTATIN [Concomitant]
     Active Substance: DIPHENHYDRAMINE HYDROCHLORIDE\LIDOCAINE HYDROCHLORIDE\NYSTATIN
     Dates: start: 20230322
  22. SUCRALFATE [Concomitant]
     Active Substance: SUCRALFATE
     Dates: start: 20230322

REACTIONS (2)
  - Tachypnoea [None]
  - Pancreatitis [None]

NARRATIVE: CASE EVENT DATE: 20230403
